FAERS Safety Report 5159280-X (Version None)
Quarter: 2006Q4

REPORT INFORMATION
  Report Type: 
  Country: None (occurrence: None)
  Receive Date: 20061120
  Receipt Date: 20061106
  Transmission Date: 20070319
  Serious: Yes (Hospitalization)
  Sender: FDA-Public Use
  Company Number: 149542ISR

PATIENT
  Age: 89 Year
  Sex: Male

DRUGS (1)
  1. AMITRIPTYLINE HCL [Suspect]
     Indication: DEPRESSION
     Dosage: 25 MG (25 MG, 1 IN 1 AS REQUIRED) ORAL
     Route: 048
     Dates: start: 20061012, end: 20061016

REACTIONS (3)
  - FATIGUE [None]
  - HYPONATRAEMIA [None]
  - UNEVALUABLE EVENT [None]
